FAERS Safety Report 4462887-6 (Version None)
Quarter: 2004Q3

REPORT INFORMATION
  Report Type: 
  Country: None (occurrence: None)
  Receive Date: 20040927
  Receipt Date: 20040914
  Transmission Date: 20050211
  Serious: Yes (Hospitalization, Other)
  Sender: FDA-Public Use
  Company Number: HQWYE011814SEP04

PATIENT
  Age: 3 Year
  Sex: Female

DRUGS (3)
  1. CHILDREN'S ADVIL [Suspect]
     Indication: PYREXIA
     Route: 048
     Dates: start: 20040715, end: 20040715
  2. CHILDREN'S ADVIL [Suspect]
     Indication: PYREXIA
     Route: 048
     Dates: start: 20040701
  3. ACETAMINOPHEN [Suspect]
     Indication: PYREXIA

REACTIONS (4)
  - CELLULITIS STREPTOCOCCAL [None]
  - COUGH [None]
  - DYSPHAGIA [None]
  - RHINITIS [None]
